FAERS Safety Report 20723380 (Version 2)
Quarter: 2022Q2

REPORT INFORMATION
  Report Type: Spontaneous
  Country: ES (occurrence: ES)
  Receive Date: 20220419
  Receipt Date: 20220505
  Transmission Date: 20220721
  Serious: Yes (Other)
  Sender: FDA-Public Use
  Company Number: ES-ELI_LILLY_AND_COMPANY-ES202204002224

PATIENT
  Age: 92 Year
  Sex: Female

DRUGS (15)
  1. PROLIA [Suspect]
     Active Substance: DENOSUMAB
     Indication: Product used for unknown indication
     Dosage: UNK UNK, UNKNOWN
     Route: 065
  2. FORTEO [Suspect]
     Active Substance: TERIPARATIDE
     Indication: Osteoporosis
     Dosage: 20 UNK
     Route: 058
     Dates: start: 2004, end: 2006
  3. FORTEO [Suspect]
     Active Substance: TERIPARATIDE
     Dosage: 20 UG, DAILY
     Route: 058
     Dates: start: 20161213, end: 20170529
  4. FORTEO [Suspect]
     Active Substance: TERIPARATIDE
     Dosage: 20 MICROGRAM, QD
     Route: 058
  5. MELATONIN [Concomitant]
     Active Substance: MELATONIN
     Dosage: 5 MILLIGRAM, QD
  6. COLLAGEN [Concomitant]
     Active Substance: COLLAGEN
     Dosage: UNK
  7. CALCIFEDIOL [Concomitant]
     Active Substance: CALCIFEDIOL
     Dosage: 1 VIAL MONTHLY (1/M) OR 15 DAYS
  8. VITAMIN C [Concomitant]
     Active Substance: ASCORBIC ACID
     Dosage: 250 MILLIGRAM, QD
  9. ASPIRIN [Concomitant]
     Active Substance: ASPIRIN
     Dosage: 1 DOSAGE FORM, QD
  10. CYANOCOBALAMIN [Concomitant]
     Active Substance: CYANOCOBALAMIN
     Dosage: 1 VIAL EVERY 2 MONTH
  11. LEVOTHYROXINE SODIUM [Concomitant]
     Active Substance: LEVOTHYROXINE SODIUM
     Dosage: 352 MILLIGRAM, QWK
  12. LEVOTHYROXINE SODIUM [Concomitant]
     Active Substance: LEVOTHYROXINE SODIUM
     Dosage: 225 MILLIGRAM, QWK
  13. RIFAXIMIN [Concomitant]
     Active Substance: RIFAXIMIN
     Dosage: 2 DOSAGE FORM, QD (2 DOSAGE FORM, DAILY FOR 7 DAYS ONCE IN A MONTH, IF IT HURT MORE SHE TOOK 3 TABLE
  14. MEBEVERINE [Concomitant]
     Active Substance: MEBEVERINE
     Indication: Abdominal pain
     Dosage: (1-2 DAYS AT REQUEST IF IT HURT OR IF SHE HAD DISCOMFORT FOR THE BELLY) UNK UNK, UNKNOWN
  15. HYALURONIC ACID [Concomitant]
     Active Substance: HYALURONIC ACID
     Dosage: UNK

REACTIONS (5)
  - Stomatitis necrotising [Unknown]
  - Dental necrosis [Unknown]
  - Arrhythmia [Unknown]
  - Incorrect product administration duration [Unknown]
  - Gingival swelling [Unknown]

NARRATIVE: CASE EVENT DATE: 20210101
